FAERS Safety Report 10168379 (Version 1)
Quarter: 2014Q2

REPORT INFORMATION
  Report Type: Spontaneous
  Country: CA (occurrence: CA)
  Receive Date: 20140513
  Receipt Date: 20140513
  Transmission Date: 20141212
  Serious: Yes (Hospitalization, Other)
  Sender: FDA-Public Use
  Company Number: CA-AMGEN INC.-CANSP2014034163

PATIENT
  Age: 71 Year
  Sex: Female

DRUGS (12)
  1. ENBREL [Suspect]
     Indication: RHEUMATOID ARTHRITIS
     Dosage: 50 MG, QWK
     Route: 065
     Dates: start: 2013
  2. CRESTOR [Concomitant]
     Dosage: UNK
  3. LIPIDIL [Concomitant]
     Dosage: UNK
  4. ADALAT [Concomitant]
     Dosage: 60 UNK, UNK
  5. PARIET [Concomitant]
     Dosage: UNK
  6. COVERSYL                           /00790702/ [Concomitant]
     Dosage: UNK
  7. AMITRIPTYLINE [Concomitant]
     Dosage: UNK
  8. HYDROXYCHLOROQUINE [Concomitant]
     Dosage: UNK
  9. OMEGA 3                            /01334101/ [Concomitant]
     Dosage: UNK
  10. VITAMIN D                          /00107901/ [Concomitant]
     Dosage: UNK
  11. MAGNESIUM [Concomitant]
     Dosage: UNK
  12. VITAMIN B12                        /00056201/ [Concomitant]
     Dosage: ONCE A MONTH

REACTIONS (1)
  - Uterine cancer [Recovered/Resolved]
